FAERS Safety Report 19520981 (Version 1)
Quarter: 2021Q3

REPORT INFORMATION
  Report Type: Spontaneous
  Country: CA (occurrence: CA)
  Receive Date: 20210712
  Receipt Date: 20210712
  Transmission Date: 20211014
  Serious: Yes (Hospitalization)
  Sender: FDA-Public Use
  Company Number: CA-PERRIGO-21CA009039

PATIENT
  Age: 62 Year
  Sex: Male

DRUGS (1)
  1. TESTOSTERONE CYPIONATE. [Suspect]
     Active Substance: TESTOSTERONE CYPIONATE
     Indication: BLOOD TESTOSTERONE DECREASED
     Dosage: 120 MG, WEEKLY
     Route: 030

REACTIONS (3)
  - Polycythaemia [Unknown]
  - Portosplenomesenteric venous thrombosis [Recovered/Resolved]
  - Intestinal ischaemia [Unknown]
